FAERS Safety Report 6974595-8 (Version None)
Quarter: 2010Q3

REPORT INFORMATION
  Report Type: 
  Country: None (occurrence: None)
  Receive Date: 20100909
  Receipt Date: 20100909
  Transmission Date: 20110219
  Serious: Yes (Other)
  Sender: FDA-Public Use
  Company Number: None

PATIENT
  Age: 55 Year
  Sex: Female
  Weight: 46.7205 kg

DRUGS (1)
  1. HYDROCHLOROTHIAZIDE [Suspect]
     Indication: OEDEMA
     Dosage: 25MG EVERY DAY
     Dates: start: 20100623, end: 20100721

REACTIONS (16)
  - ACNE [None]
  - BREAST ENLARGEMENT [None]
  - CHILLS [None]
  - DISCOMFORT [None]
  - EMOTIONAL DISTRESS [None]
  - ERYTHEMA [None]
  - INFECTION [None]
  - INSOMNIA [None]
  - JOINT SWELLING [None]
  - MOOD SWINGS [None]
  - PAIN IN EXTREMITY [None]
  - PRODUCT SUBSTITUTION ISSUE [None]
  - PRURITUS [None]
  - PURULENCE [None]
  - RASH [None]
  - SKIN ULCER [None]
